FAERS Safety Report 21466298 (Version 2)
Quarter: 2022Q4

REPORT INFORMATION
  Report Type: Report from Study
  Country: US (occurrence: US)
  Receive Date: 20221017
  Receipt Date: 20221114
  Transmission Date: 20230113
  Serious: No
  Sender: FDA-Public Use
  Company Number: US-ABBVIE-22K-163-4437312-00

PATIENT
  Age: 35 Year
  Sex: Female
  Weight: 117.93 kg

DRUGS (10)
  1. RINVOQ [Suspect]
     Active Substance: UPADACITINIB
     Indication: Rheumatoid arthritis
     Route: 048
     Dates: start: 20210812
  2. RINVOQ [Suspect]
     Active Substance: UPADACITINIB
     Indication: Rheumatoid arthritis
     Dosage: 15 MG PILL?FORM STRENGTH 15 MILLIGRAM
     Route: 048
     Dates: start: 20210812
  3. VITAMIN D 1000 [Concomitant]
     Indication: Product used for unknown indication
     Dosage: PILL 1X DAY
     Route: 048
  4. MODERNA COVID-19 VACCINE [Concomitant]
     Active Substance: ELASOMERAN
     Indication: COVID-19 immunisation
     Dosage: TIME INTERVAL: 1 TOTAL
     Route: 030
     Dates: start: 20211004, end: 20211004
  5. MODERNA COVID-19 VACCINE [Concomitant]
     Active Substance: ELASOMERAN
     Indication: COVID-19 immunisation
     Dosage: TIME INTERVAL: 1 TOTAL
     Route: 030
     Dates: start: 20211103, end: 20211103
  6. MODERNA COVID-19 VACCINE [Concomitant]
     Active Substance: ELASOMERAN
     Indication: COVID-19 immunisation
     Dosage: TIME INTERVAL: 1 TOTAL: BOOSTER VACCINE
     Route: 030
  7. ALLERTEC 10 [Concomitant]
     Indication: Product used for unknown indication
     Dosage: PILL 1X DAY
     Route: 048
     Dates: start: 20190312
  8. GABAPENTINE 100 [Concomitant]
     Indication: Product used for unknown indication
     Dosage: PILL 3X DAY
     Route: 048
     Dates: start: 20190312
  9. CELECOXIB [Concomitant]
     Active Substance: CELECOXIB
     Indication: Product used for unknown indication
     Dosage: PILL 2X DAY
     Route: 048
     Dates: start: 20190312
  10. VITAMIN B12 1000 [Concomitant]
     Indication: Product used for unknown indication
     Dosage: PILL 1X DAY
     Route: 048
     Dates: start: 20190312

REACTIONS (4)
  - Inflammation [Not Recovered/Not Resolved]
  - Pain [Unknown]
  - Fatigue [Recovering/Resolving]
  - Musculoskeletal pain [Recovering/Resolving]

NARRATIVE: CASE EVENT DATE: 20220701
